FAERS Safety Report 24741979 (Version 3)
Quarter: 2025Q1

REPORT INFORMATION
  Report Type: Spontaneous
  Country: JP (occurrence: JP)
  Receive Date: 20241217
  Receipt Date: 20250303
  Transmission Date: 20250408
  Serious: Yes (Other)
  Sender: UCB
  Company Number: JP-UCBJ-CD202412448UCBPHAPROD

PATIENT
  Age: 55 Year
  Sex: Male

DRUGS (6)
  1. BRIVIACT [Suspect]
     Active Substance: BRIVARACETAM
     Indication: Partial seizures
     Route: 048
     Dates: start: 20241106, end: 2024
  2. BRIVIACT [Suspect]
     Active Substance: BRIVARACETAM
     Dosage: 25 MILLIGRAM, 2X/DAY (BID)
     Route: 048
     Dates: start: 20241204
  3. VIMPAT [Concomitant]
     Active Substance: LACOSAMIDE
     Indication: Partial seizures
     Route: 048
     Dates: start: 20190724
  4. TEGRETOL [Concomitant]
     Active Substance: CARBAMAZEPINE
     Indication: Partial seizures
     Dosage: 300 MILLIGRAM, 3X/DAY (TID)
     Route: 048
  5. MYSTAN [Concomitant]
     Active Substance: CLOBAZAM
     Indication: Partial seizures
     Route: 048
     Dates: start: 20000717
  6. GABAPENTIN [Concomitant]
     Active Substance: GABAPENTIN
     Indication: Partial seizures
     Dosage: 200 MILLIGRAM, 2X/DAY (BID)
     Route: 048
     Dates: start: 20231016

REACTIONS (3)
  - Status epilepticus [Recovered/Resolved]
  - Prescribed underdose [Unknown]
  - Off label use [Unknown]

NARRATIVE: CASE EVENT DATE: 20241106
